FAERS Safety Report 6833058-0 (Version None)
Quarter: 2010Q3

REPORT INFORMATION
  Report Type: 
  Country: None (occurrence: None)
  Receive Date: 20100712
  Receipt Date: 20100607
  Transmission Date: 20110219
  Serious: No
  Sender: FDA-Public Use
  Company Number: US-BIOGENIDEC-2010BI011436

PATIENT
  Age: 38 Year
  Sex: Male

DRUGS (1)
  1. TYSABRI [Suspect]
     Indication: MULTIPLE SCLEROSIS
     Route: 042
     Dates: start: 20070420

REACTIONS (3)
  - MULTIPLE SCLEROSIS RELAPSE [None]
  - PERSONALITY CHANGE [None]
  - ROAD TRAFFIC ACCIDENT [None]
